FAERS Safety Report 6449975-X (Version None)
Quarter: 2009Q4

REPORT INFORMATION
  Report Type: 
  Country: None (occurrence: None)
  Receive Date: 20091120
  Receipt Date: 20091120
  Transmission Date: 20100525
  Serious: Yes (Hospitalization)
  Sender: FDA-Public Use
  Company Number: None

PATIENT
  Age: 68 Year
  Sex: Female
  Weight: 136.9 kg

DRUGS (1)
  1. ZESTRIL [Suspect]

REACTIONS (5)
  - ACUTE RESPIRATORY FAILURE [None]
  - ANGIOEDEMA [None]
  - COUGH [None]
  - OROPHARYNGEAL SWELLING [None]
  - SWOLLEN TONGUE [None]
